FAERS Safety Report 9087307 (Version 1)
Quarter: 2013Q1

REPORT INFORMATION
  Report Type: Spontaneous
  Country: US (occurrence: US)
  Receive Date: 20130201
  Receipt Date: 20130201
  Transmission Date: 20140127
  Serious: No
  Sender: FDA-Public Use
  Company Number: US-009507513-1302USA000401

PATIENT
  Sex: Female

DRUGS (1)
  1. MIRALAX [Suspect]
     Indication: COLONOSCOPY
     Dosage: UNK, ONCE
     Route: 048

REACTIONS (3)
  - Overdose [Unknown]
  - Off label use [Unknown]
  - Drug ineffective [Unknown]
